FAERS Safety Report 6192195-7 (Version None)
Quarter: 2009Q2

REPORT INFORMATION
  Report Type: 
  Country: None (occurrence: None)
  Receive Date: 20090515
  Receipt Date: 20090514
  Transmission Date: 20091009
  Serious: Yes (Other)
  Sender: FDA-Public Use
  Company Number: VE-WYE-H09353709

PATIENT
  Age: 53 Year
  Sex: Female
  Weight: 45 kg

DRUGS (2)
  1. TYGACIL [Suspect]
     Indication: INFECTION
     Route: 042
     Dates: start: 20090301, end: 20090324
  2. TAZOPRIL [Suspect]
     Indication: INFECTION
     Dosage: 4 MG/500 MG EVERY 8 HOURS
     Route: 042
     Dates: start: 20090301, end: 20090402

REACTIONS (2)
  - ASPARTATE AMINOTRANSFERASE INCREASED [None]
  - HEPATOTOXICITY [None]
